FAERS Safety Report 8590326-2 (Version None)
Quarter: 2012Q3

REPORT INFORMATION
  Report Type: 
  Country: None (occurrence: None)
  Receive Date: 20120813
  Receipt Date: 20120801
  Transmission Date: 20120928
  Serious: Yes (Hospitalization)
  Sender: FDA-Public Use
  Company Number: JP-AMGEN-JPNCT2012050222

PATIENT
  Age: 81 Year
  Sex: Male

DRUGS (11)
  1. LENDORMIN [Concomitant]
     Dosage: UNK
     Route: 048
  2. DARBEPOETIN ALFA [Suspect]
     Indication: NEPHROGENIC ANAEMIA
     Dosage: 20 MUG, QWK
     Route: 040
     Dates: start: 20111229, end: 20120119
  3. ZETIA [Concomitant]
     Dosage: UNK
     Route: 048
  4. ADALAT [Concomitant]
     Dosage: UNK
     Route: 048
  5. MICARDIS [Concomitant]
     Dosage: UNK
     Route: 048
  6. DARBEPOETIN ALFA [Suspect]
     Dosage: 30 MUG, QWK
     Route: 040
     Dates: start: 20120126, end: 20120322
  7. ASPIRIN [Concomitant]
     Dosage: UNK
     Route: 048
  8. LASIX [Concomitant]
     Indication: NEPHROSCLEROSIS
     Dosage: UNK
     Route: 048
  9. LANSOPRAZOLE [Concomitant]
     Dosage: UNK
     Route: 048
  10. DARBEPOETIN ALFA [Suspect]
     Dosage: 60 MUG, QWK
     Route: 040
     Dates: start: 20120329
  11. CALBLOCK [Concomitant]
     Dosage: UNK
     Route: 048

REACTIONS (1)
  - RECTAL CANCER [None]
